FAERS Safety Report 10310075 (Version 1)
Quarter: 2014Q3

REPORT INFORMATION
  Report Type: Spontaneous
  Country: US (occurrence: US)
  Receive Date: 20140717
  Receipt Date: 20140717
  Transmission Date: 20150326
  Serious: No
  Sender: FDA-Public Use
  Company Number: US-009507513-1407USA007058

PATIENT
  Age: 57 Year
  Sex: Male
  Weight: 82.1 kg

DRUGS (3)
  1. PEGASYS [Suspect]
     Active Substance: PEGINTERFERON ALFA-2A
     Dosage: 180 MICROGRAM, QW
     Route: 058
  2. VICTRELIS [Suspect]
     Active Substance: BOCEPREVIR
     Indication: HEPATITIS C
     Dosage: TAKE FOUR CAPSULES BY MOUTH EVERY EIGHT HOURS
     Route: 048
     Dates: start: 20121114
  3. REBETOL [Suspect]
     Active Substance: RIBAVIRIN
     Indication: HEPATITIS C
     Dosage: TAKE TWO CAPSULES BY MOUTH EVRY MORNING AND TAKE ONE CAPSULE EVERY EVENING FOR INFECTION
     Route: 048
     Dates: start: 20121016

REACTIONS (2)
  - Anaemia [Unknown]
  - Dysgeusia [Unknown]

NARRATIVE: CASE EVENT DATE: 20121127
